FAERS Safety Report 6148188-9 (Version None)
Quarter: 2009Q2

REPORT INFORMATION
  Report Type: 
  Country: None (occurrence: None)
  Receive Date: 20090408
  Receipt Date: 20090330
  Transmission Date: 20091009
  Serious: Yes (Other)
  Sender: FDA-Public Use
  Company Number: US-ROCHE-598845

PATIENT
  Sex: Male
  Weight: 63.5 kg

DRUGS (1)
  1. CAPECITABINE [Suspect]
     Indication: ANAL CANCER
     Dosage: ADDITIONAL INDICATION: METASTATIC RECTAL CANCER
     Route: 048
     Dates: start: 20081107, end: 20081125

REACTIONS (2)
  - METASTASIS [None]
  - PLATELET COUNT DECREASED [None]
